FAERS Safety Report 10211057 (Version 3)
Quarter: 2014Q3

REPORT INFORMATION
  Report Type: Spontaneous
  Country: US (occurrence: None)
  Receive Date: 20140528
  Receipt Date: 20140703
  Transmission Date: 20150326
  Serious: Yes (Hospitalization)
  Sender: FDA-Public Use
  Company Number: UNT-2014-000184

PATIENT
  Age: 66 Year
  Sex: Female
  Weight: 99.8 kg

DRUGS (3)
  1. TRACLEER [Concomitant]
     Active Substance: BOSENTAN\BOSENTAN MONOHYDRATE
  2. ADEMPAS (RIOCIGUAT) [Concomitant]
  3. REMODULIN [Suspect]
     Active Substance: TREPROSTINIL
     Indication: PULMONARY ARTERIAL HYPERTENSION
     Dosage: 0.025 UG/KG/MIN, CONTINUING, IV DRIP
     Route: 041
     Dates: start: 20130823

REACTIONS (4)
  - Chest pain [None]
  - Headache [None]
  - Back pain [None]
  - Peripheral swelling [None]
